FAERS Safety Report 4443090-2 (Version None)
Quarter: 2004Q3

REPORT INFORMATION
  Report Type: 
  Country: None (occurrence: None)
  Receive Date: 20040908
  Receipt Date: 20040827
  Transmission Date: 20050211
  Serious: Yes (Death)
  Sender: FDA-Public Use
  Company Number: NSADSS2002015203

PATIENT
  Sex: Female

DRUGS (2)
  1. REMICADE [Suspect]
     Route: 041
     Dates: start: 20001018
  2. REMICADE [Suspect]
     Indication: RHEUMATOID ARTHRITIS
     Route: 041
     Dates: start: 20001018

REACTIONS (2)
  - CEREBROVASCULAR ACCIDENT [None]
  - INTERSTITIAL LUNG DISEASE [None]
